FAERS Safety Report 10176970 (Version 1)
Quarter: 2014Q2

REPORT INFORMATION
  Report Type: Spontaneous
  Country: FR (occurrence: FR)
  Receive Date: 20140516
  Receipt Date: 20140516
  Transmission Date: 20141212
  Serious: Yes (Hospitalization)
  Sender: FDA-Public Use
  Company Number: FR-PFIZER INC-2014134019

PATIENT
  Age: 2 Year
  Sex: Female

DRUGS (1)
  1. TENORMIN [Suspect]
     Dosage: 10 MG, 1X/DAY
     Route: 048
     Dates: start: 20140304, end: 20140328

REACTIONS (4)
  - Cerebellar syndrome [Recovering/Resolving]
  - Balance disorder [Recovering/Resolving]
  - Dysarthria [Recovering/Resolving]
  - Ataxia [Unknown]
